FAERS Safety Report 20723017 (Version 1)
Quarter: 2022Q2

REPORT INFORMATION
  Report Type: Spontaneous
  Country: DK (occurrence: DK)
  Receive Date: 20220419
  Receipt Date: 20220419
  Transmission Date: 20220721
  Serious: Yes (Life-Threatening)
  Sender: FDA-Public Use
  Company Number: None

PATIENT
  Age: 91 Year
  Sex: Female

DRUGS (1)
  1. NOVORAPID [Suspect]
     Active Substance: INSULIN ASPART
     Indication: Hyperkalaemia
     Dosage: STRENGTH: 100 E/ML  16 IU RAPID-ACTING INSULIN IN 1 L ISOTONIC GLUCOSE
     Route: 042
     Dates: start: 20220323, end: 20220323

REACTIONS (5)
  - Muscle spasms [Recovered/Resolved]
  - Depressed level of consciousness [Recovered/Resolved]
  - Hypertonia [Recovered/Resolved]
  - Hypoglycaemia [Recovered/Resolved]
  - Product use in unapproved indication [Unknown]

NARRATIVE: CASE EVENT DATE: 20220323
